FAERS Safety Report 24613280 (Version 1)
Quarter: 2024Q4

REPORT INFORMATION
  Report Type: Spontaneous
  Country: US (occurrence: US)
  Receive Date: 20241113
  Receipt Date: 20241113
  Transmission Date: 20250115
  Serious: Yes (Other)
  Sender: MERCK
  Company Number: US-009507513-2411USA003863

PATIENT
  Sex: Female

DRUGS (1)
  1. KEYTRUDA [Suspect]
     Active Substance: PEMBROLIZUMAB
     Indication: Carcinoma in situ of eye
     Dosage: UNK, Q3W
     Route: 042
     Dates: start: 202307, end: 202312

REACTIONS (1)
  - Osteonecrosis of jaw [Not Recovered/Not Resolved]
